FAERS Safety Report 5723720-5 (Version None)
Quarter: 2008Q2

REPORT INFORMATION
  Report Type: 
  Country: None (occurrence: None)
  Receive Date: 20080430
  Receipt Date: 20080424
  Transmission Date: 20081010
  Serious: Yes (Other)
  Sender: FDA-Public Use
  Company Number: AU-ASTRAZENECA-2008AC01075

PATIENT
  Age: 15 Year
  Sex: Male
  Weight: 69 kg

DRUGS (10)
  1. PROPOFOL [Suspect]
     Indication: GENERAL ANAESTHESIA
     Route: 042
  2. FENTANYL CITRATE [Suspect]
     Indication: GENERAL ANAESTHESIA
  3. MIDAZOLAM HCL [Suspect]
     Indication: GENERAL ANAESTHESIA
  4. PARECOXIB SODIUM [Suspect]
     Indication: ANALGESIA
  5. PARACETAMOL [Suspect]
     Indication: ANALGESIA
     Route: 042
  6. OXYGEN [Suspect]
     Indication: ANAESTHESIA
  7. SEVOFLURANE [Suspect]
     Indication: ANAESTHESIA
  8. MORPHINE [Suspect]
     Indication: ANALGESIA
     Dosage: DIVIDED DOSES
  9. SERATIDE [Concomitant]
     Indication: ASTHMA
     Route: 055
  10. ALBUTEROL [Concomitant]
     Indication: ASTHMA
     Route: 055

REACTIONS (1)
  - MIGRAINE WITH AURA [None]
